FAERS Safety Report 7543806-2 (Version None)
Quarter: 2011Q2

REPORT INFORMATION
  Report Type: 
  Country: None (occurrence: None)
  Receive Date: 20110613
  Receipt Date: 20110606
  Transmission Date: 20111010
  Serious: Yes (Death)
  Sender: FDA-Public Use
  Company Number: GB-ABBOTT-11P-167-0731578-00

PATIENT
  Sex: Male

DRUGS (4)
  1. TOPIRAMATE [Suspect]
     Indication: EPILEPSY
     Route: 048
  2. PHENYTOIN [Suspect]
     Indication: EPILEPSY
  3. VALPROATE SODIUM [Suspect]
     Indication: EPILEPSY
  4. LAMOTRIGINE [Suspect]
     Indication: EPILEPSY

REACTIONS (2)
  - RENAL FAILURE [None]
  - SEPSIS [None]
